FAERS Safety Report 7378507-7 (Version None)
Quarter: 2011Q1

REPORT INFORMATION
  Report Type: 
  Country: None (occurrence: None)
  Receive Date: 20110328
  Receipt Date: 20110314
  Transmission Date: 20110831
  Serious: Yes (Death, Other)
  Sender: FDA-Public Use
  Company Number: US-AMGEN-USACT2011014076

PATIENT

DRUGS (6)
  1. TRASTUZUMAB [Suspect]
     Indication: BREAST CANCER
  2. LAPATINIB [Suspect]
     Dosage: 1000 MG, UNK
     Route: 048
  3. NEULASTA [Suspect]
     Indication: BREAST CANCER
  4. DOXORUBICIN [Suspect]
     Indication: BREAST CANCER
     Dosage: 60 MG/M2, Q2WK
     Route: 042
  5. PACLITAXEL [Suspect]
     Indication: BREAST CANCER
     Dosage: 80 MG/M2, QWK
     Route: 042
  6. CYCLOPHOSPHAMIDE [Suspect]
     Indication: BREAST CANCER
     Dosage: 600 MG/M2, Q2WK
     Route: 042

REACTIONS (30)
  - NAUSEA [None]
  - DIARRHOEA [None]
  - DYSPNOEA [None]
  - BLOOD BILIRUBIN INCREASED [None]
  - LEUKOPENIA [None]
  - FATIGUE [None]
  - HEADACHE [None]
  - PNEUMONITIS [None]
  - FEBRILE NEUTROPENIA [None]
  - PRURITUS [None]
  - PYREXIA [None]
  - HEPATITIS VIRAL [None]
  - PARONYCHIA [None]
  - ELECTROCARDIOGRAM QT PROLONGED [None]
  - PAIN IN EXTREMITY [None]
  - NEUTROPENIA [None]
  - ANAEMIA [None]
  - DERMATITIS ACNEIFORM [None]
  - PNEUMONIA [None]
  - MYOCARDITIS [None]
  - EJECTION FRACTION DECREASED [None]
  - DYSPEPSIA [None]
  - PERIPHERAL SENSORY NEUROPATHY [None]
  - RASH [None]
  - NEOPLASM MALIGNANT [None]
  - CELLULITIS [None]
  - HYPERSENSITIVITY [None]
  - VOMITING [None]
  - ALANINE AMINOTRANSFERASE INCREASED [None]
  - ASPARTATE AMINOTRANSFERASE INCREASED [None]
